APPROVED DRUG PRODUCT: HEPARIN SODIUM 25,000 UNITS IN DEXTROSE 5% IN PLASTIC CONTAINER
Active Ingredient: HEPARIN SODIUM
Strength: 5,000 UNITS/100ML
Dosage Form/Route: INJECTABLE;INJECTION
Application: N019952 | Product #004 | TE Code: AP
Applicant: B BRAUN MEDICAL INC
Approved: Jul 20, 1992 | RLD: Yes | RS: Yes | Type: RX